FAERS Safety Report 14916487 (Version 1)
Quarter: 2018Q2

REPORT INFORMATION
  Report Type: Report from Study
  Country: CA (occurrence: CA)
  Receive Date: 20180519
  Receipt Date: 20180519
  Transmission Date: 20180711
  Serious: No
  Sender: FDA-Public Use
  Company Number: CA-BIOVERATIV-2018BV000261

PATIENT
  Age: 65 Year
  Sex: Male
  Weight: 121 kg

DRUGS (4)
  1. ALPROLIX [Suspect]
     Active Substance: EFTRENONACOG ALFA
     Indication: FACTOR IX DEFICIENCY
     Dosage: ONCE
     Route: 042
     Dates: start: 20180509
  2. ALPROLIX [Suspect]
     Active Substance: EFTRENONACOG ALFA
     Indication: HAEMORRHAGE
     Dosage: PERIPHERAL IV
     Route: 042
  3. ALPROLIX [Suspect]
     Active Substance: EFTRENONACOG ALFA
     Route: 042
     Dates: start: 20180511
  4. ALPROLIX [Suspect]
     Active Substance: EFTRENONACOG ALFA
     Dosage: EXTRA DOSE - ABOUT 7000 IU (2 VIALS OF 3156 AND 1 VIAL OF 1167 UNITS)
     Route: 042
     Dates: start: 20180510, end: 20180510

REACTIONS (2)
  - Skin disorder [Recovered/Resolved]
  - Wound [Recovered/Resolved]

NARRATIVE: CASE EVENT DATE: 20180509
